FAERS Safety Report 15500963 (Version 2)
Quarter: 2018Q4

REPORT INFORMATION
  Report Type: Spontaneous
  Country: US (occurrence: US)
  Receive Date: 20181015
  Receipt Date: 20181023
  Transmission Date: 20190205
  Serious: Yes (Life-Threatening, Hospitalization, Other)
  Sender: FDA-Public Use
  Company Number: US-ELI_LILLY_AND_COMPANY-US201810006421

PATIENT
  Sex: Male

DRUGS (2)
  1. TRULICITY [Suspect]
     Active Substance: DULAGLUTIDE
     Indication: PRODUCT USED FOR UNKNOWN INDICATION
     Dosage: UNK, UNKNOWN
     Route: 065
     Dates: start: 20170517
  2. DOXYCYCLINE. [Suspect]
     Active Substance: DOXYCYCLINE
     Indication: PRODUCT USED FOR UNKNOWN INDICATION
     Dosage: UNK, UNKNOWN
     Route: 065

REACTIONS (14)
  - Decreased appetite [Recovered/Resolved]
  - Spleen disorder [Unknown]
  - Failure to thrive [Recovered/Resolved]
  - Splenic artery aneurysm [Unknown]
  - Acute kidney injury [Unknown]
  - Abdominal pain [Recovered/Resolved]
  - Groin infection [Unknown]
  - Acute respiratory failure [Unknown]
  - Hyperhidrosis [Unknown]
  - Pancreatitis necrotising [Unknown]
  - Pancreas infection [Unknown]
  - Abdominal abscess [Unknown]
  - Acute left ventricular failure [Unknown]
  - Thrombosis [Unknown]

NARRATIVE: CASE EVENT DATE: 20170517
